FAERS Safety Report 26106222 (Version 2)
Quarter: 2025Q4

REPORT INFORMATION
  Report Type: Spontaneous
  Country: EU (occurrence: EU)
  Receive Date: 20251201
  Receipt Date: 20251208
  Transmission Date: 20260117
  Serious: Yes (Other)
  Sender: BOEHRINGER INGELHEIM
  Company Number: None

PATIENT
  Age: 78 Year
  Sex: Female
  Weight: 60 kg

DRUGS (2)
  1. PRADAXA [Suspect]
     Active Substance: DABIGATRAN ETEXILATE MESYLATE
     Indication: Pulmonary embolism
     Dosage: FOR ABOUT 10 YEARS
     Dates: start: 20170721
  2. URAPIDIL [Suspect]
     Active Substance: URAPIDIL
     Indication: Pulmonary embolism
     Dosage: 60 MG IN THE MORNING AND 30MG IN THE EVENING
     Dates: start: 202506

REACTIONS (1)
  - Syncope [Recovered/Resolved]

NARRATIVE: CASE EVENT DATE: 20251117
